FAERS Safety Report 16264836 (Version 1)
Quarter: 2019Q2

REPORT INFORMATION
  Report Type: Spontaneous
  Country: US (occurrence: US)
  Receive Date: 20190502
  Receipt Date: 20190502
  Transmission Date: 20190711
  Serious: Yes (Other)
  Sender: FDA-Public Use
  Company Number: US-PFIZER INC-2019185702

PATIENT
  Age: 59 Year
  Sex: Female
  Weight: 60 kg

DRUGS (2)
  1. LYRICA [Suspect]
     Active Substance: PREGABALIN
     Indication: FIBROMYALGIA
     Dosage: 100 MG, 2X/DAY (100 MG CAPSULE, 1 CAPSULE TWICE DAILY BY MOUTH)
     Route: 048
  2. LYRICA [Suspect]
     Active Substance: PREGABALIN
     Dosage: 100 MG, DAILY (ONE PILL PER DAY)
     Route: 048

REACTIONS (3)
  - Intentional product misuse [Unknown]
  - Road traffic accident [Unknown]
  - Musculoskeletal disorder [Unknown]
